FAERS Safety Report 5718475-4 (Version None)
Quarter: 2008Q2

REPORT INFORMATION
  Report Type: 
  Country: None (occurrence: None)
  Receive Date: 20080425
  Receipt Date: 20080417
  Transmission Date: 20081010
  Serious: Yes (Other)
  Sender: FDA-Public Use
  Company Number: IE-PFIZER INC-2008021637

PATIENT
  Sex: Male
  Weight: 92.1 kg

DRUGS (6)
  1. LIPITOR [Suspect]
     Route: 048
  2. PLAVIX [Suspect]
  3. EZETROL [Concomitant]
  4. TRITACE [Concomitant]
  5. EMCOR [Concomitant]
  6. NU-SEALS [Concomitant]

REACTIONS (3)
  - HAEMOGLOBIN DECREASED [None]
  - HAEMORRHAGE [None]
  - MYALGIA [None]
